FAERS Safety Report 24292931 (Version 1)
Quarter: 2024Q3

REPORT INFORMATION
  Report Type: Spontaneous
  Country: US (occurrence: None)
  Receive Date: 20240906
  Receipt Date: 20240906
  Transmission Date: 20241017
  Serious: No
  Sender: DOMPE FARMACEUTICI
  Company Number: US-FARMAPROD-202311-3229

PATIENT
  Age: 90 Year
  Sex: Female
  Weight: 63.96 kg

DRUGS (26)
  1. OXERVATE [Suspect]
     Active Substance: CENEGERMIN-BKBJ
     Indication: Neurotrophic keratopathy
     Route: 047
     Dates: start: 20230824, end: 20230921
  2. OXERVATE [Suspect]
     Active Substance: CENEGERMIN-BKBJ
     Route: 047
     Dates: start: 20240211
  3. OXERVATE [Suspect]
     Active Substance: CENEGERMIN-BKBJ
  4. OXERVATE [Suspect]
     Active Substance: CENEGERMIN-BKBJ
  5. OXERVATE [Suspect]
     Active Substance: CENEGERMIN-BKBJ
  6. TIMOLOL MALEATE [Concomitant]
     Active Substance: TIMOLOL MALEATE
  7. REFRESH LACRI-LUBE [Concomitant]
     Active Substance: MINERAL OIL\PETROLATUM
  8. REFRESH CLASSIC [Concomitant]
     Active Substance: POLYVINYL ALCOHOL\POVIDONE
  9. MURO-128 [Concomitant]
  10. MURO-128 [Concomitant]
  11. VYZULTA [Concomitant]
     Active Substance: LATANOPROSTENE BUNOD
  12. VITAMIN D3 [Concomitant]
     Active Substance: CHOLECALCIFEROL
  13. CITRACAL/VITAMIN D3 [Concomitant]
     Dosage: 250 MG-5 MCG
  14. MINERALS\VITAMINS [Concomitant]
     Active Substance: MINERALS\VITAMINS
     Dosage: 0.4-300-250
  15. MERIBIN [Concomitant]
  16. UBIQUINOL [Concomitant]
     Active Substance: UBIQUINOL
  17. VALSARTAN [Concomitant]
     Active Substance: VALSARTAN
  18. DICYCLOMINE HYDROCHLORIDE [Concomitant]
     Active Substance: DICYCLOMINE HYDROCHLORIDE
  19. GABAPENTIN [Concomitant]
     Active Substance: GABAPENTIN
  20. METHIMAZOLE [Concomitant]
     Active Substance: METHIMAZOLE
  21. ALIGN [Concomitant]
     Active Substance: BIFIDOBACTERIUM LONGUM SUBSP. INFANTIS
  22. ZINC SULFATE [Concomitant]
     Active Substance: ZINC SULFATE
     Dosage: 50(220)MG
  23. MESALAMINE [Concomitant]
     Active Substance: MESALAMINE
  24. SPIRONOLACTONE [Concomitant]
     Active Substance: SPIRONOLACTONE
  25. CLOPIDOGREL [Concomitant]
     Active Substance: CLOPIDOGREL BISULFATE
  26. D3-5000 [Concomitant]

REACTIONS (8)
  - Eye pain [Not Recovered/Not Resolved]
  - Off label use [Unknown]
  - Accidental overdose [Unknown]
  - Device use issue [Unknown]
  - Eye irritation [Unknown]
  - Lacrimation increased [Unknown]
  - Foreign body sensation in eyes [Unknown]
  - Rhinorrhoea [Unknown]

NARRATIVE: CASE EVENT DATE: 20240211
